FAERS Safety Report 19995305 (Version 1)
Quarter: 2021Q4

REPORT INFORMATION
  Report Type: Spontaneous
  Country: NL (occurrence: NL)
  Receive Date: 20211026
  Receipt Date: 20211026
  Transmission Date: 20220303
  Serious: Yes (Hospitalization, Other)
  Sender: FDA-Public Use
  Company Number: NL-VIIV HEALTHCARE LIMITED-US2021GSK210609

PATIENT
  Age: 55 Year
  Sex: Male

DRUGS (6)
  1. TRIUMEQ [Suspect]
     Active Substance: ABACAVIR SULFATE\DOLUTEGRAVIR SODIUM\LAMIVUDINE
     Indication: HIV infection
     Dosage: UNK
  2. DEXAMETHASONE [Concomitant]
     Active Substance: DEXAMETHASONE
     Indication: COVID-19
     Dosage: 6 MG
  3. REMDESIVIR [Concomitant]
     Active Substance: REMDESIVIR
     Indication: COVID-19
     Dosage: UNK, 5 DOSES
  4. AZITHROMYCIN ANHYDROUS [Concomitant]
     Active Substance: AZITHROMYCIN ANHYDROUS
     Indication: Product used for unknown indication
     Dosage: UNK
  5. CLINDAMYCIN [Concomitant]
     Active Substance: CLINDAMYCIN
     Indication: Product used for unknown indication
     Dosage: UNK
  6. PRIMAQUINE PHOSPHATE [Concomitant]
     Active Substance: PRIMAQUINE PHOSPHATE
     Indication: Product used for unknown indication
     Dosage: UNK

REACTIONS (4)
  - Immune reconstitution inflammatory syndrome [Unknown]
  - Hypoxia [Unknown]
  - Disease progression [Unknown]
  - Treatment noncompliance [Unknown]
